FAERS Safety Report 18266626 (Version 1)
Quarter: 2020Q3

REPORT INFORMATION
  Report Type: Spontaneous
  Country: ES (occurrence: ES)
  Receive Date: 20200915
  Receipt Date: 20200915
  Transmission Date: 20201103
  Serious: Yes (Other)
  Sender: FDA-Public Use
  Company Number: ES-B.I. PHARMACEUTICALS,INC./RIDGEFIELD-2020-BI-045703

PATIENT
  Age: 83 Year
  Sex: Female
  Weight: 72 kg

DRUGS (7)
  1. MYSOLINE [Concomitant]
     Active Substance: PRIMIDONE
     Indication: ESSENTIAL TREMOR
     Dosage: 2 AND HALF TABLET EVERY DAY
     Dates: start: 20171110
  2. OLMETEC [Concomitant]
     Active Substance: OLMESARTAN MEDOXOMIL
     Indication: HYPERTENSION
     Dosage: 1 TABLET EVERY DAY
     Dates: start: 20160422
  3. VELMETIA [Suspect]
     Active Substance: METFORMIN\SITAGLIPTIN
     Indication: TYPE 2 DIABETES MELLITUS
     Dosage: 1 TABLET EVERY 12 HOURS
     Dates: start: 20180326
  4. JARDIANCE [Suspect]
     Active Substance: EMPAGLIFLOZIN
     Indication: TYPE 2 DIABETES MELLITUS
     Dosage: 1 TABLET EVERY DAY
     Dates: start: 20190408
  5. MIRAPEXIN [Concomitant]
     Active Substance: PRAMIPEXOLE
     Indication: ESSENTIAL TREMOR
     Dosage: 1 TABLET EVERY DAY
     Dates: start: 20170415
  6. CROMATONBIC [Concomitant]
     Active Substance: VITAMINS
     Indication: VITAMIN B12 DEFICIENCY
     Dosage: 1 AMPOULE EVERY 30 DAYS
     Dates: start: 20160801
  7. BETMIGA [Concomitant]
     Active Substance: MIRABEGRON
     Indication: DYSURIA
     Dosage: 1 TABLET AT NIGHT
     Dates: start: 20181204

REACTIONS (2)
  - Urinary tract infection [Recovering/Resolving]
  - Metabolic acidosis [Recovered/Resolved]

NARRATIVE: CASE EVENT DATE: 20200701
